FAERS Safety Report 5388943-6 (Version None)
Quarter: 2007Q3

REPORT INFORMATION
  Report Type: 
  Country: None (occurrence: None)
  Receive Date: 20070717
  Receipt Date: 20070709
  Transmission Date: 20080115
  Serious: Yes (Other)
  Sender: FDA-Public Use
  Company Number: PHBS2007BR11661

PATIENT
  Age: 33 Year
  Sex: Female
  Weight: 64 kg

DRUGS (6)
  1. TOFRANIL [Suspect]
     Indication: DEPRESSION
     Dosage: 75 MG/D
     Route: 048
  2. DISULFIRAM [Concomitant]
     Indication: ALCOHOLISM
     Dosage: 1 SPOON DAILY
     Route: 048
  3. RIVOTRIL [Concomitant]
     Indication: DEPRESSION
     Dosage: 4 MG, BID
     Route: 048
  4. NEOZINE [Concomitant]
     Indication: ANXIETY
     Dosage: 25 MG, BID
     Route: 048
  5. CHLORDIAZEPOXIDE [Concomitant]
     Indication: ANXIETY
     Dosage: 25 MG, BID
     Route: 048
  6. BIOTONICO [Suspect]
     Dosage: 1 SPOON
     Route: 048
     Dates: start: 20070709, end: 20070709

REACTIONS (6)
  - CATARACT [None]
  - ERYTHEMA [None]
  - HEADACHE [None]
  - MASS [None]
  - MYDRIASIS [None]
  - POISONING [None]
